FAERS Safety Report 18725259 (Version 5)
Quarter: 2022Q1

REPORT INFORMATION
  Report Type: Report from Study
  Country: BR (occurrence: BR)
  Receive Date: 20210111
  Receipt Date: 20220321
  Transmission Date: 20220423
  Serious: Yes (Hospitalization, Disabling, Other)
  Sender: FDA-Public Use
  Company Number: NVSC2020BR312279

PATIENT
  Age: 41 Year
  Sex: Male

DRUGS (1)
  1. VOTRIENT [Suspect]
     Active Substance: PAZOPANIB HYDROCHLORIDE
     Indication: Renal cancer metastatic
     Dosage: 400 MG (2 TABLETS A DAY)
     Route: 065
     Dates: start: 20201113

REACTIONS (21)
  - Thrombosis [Not Recovered/Not Resolved]
  - Movement disorder [Recovering/Resolving]
  - Paralysis [Unknown]
  - Metastases to liver [Unknown]
  - Metastases to lung [Unknown]
  - Neoplasm [Unknown]
  - Malignant neoplasm progression [Unknown]
  - Renal cancer metastatic [Unknown]
  - Headache [Not Recovered/Not Resolved]
  - Dyspnoea [Not Recovered/Not Resolved]
  - Chest pain [Unknown]
  - Gait disturbance [Recovering/Resolving]
  - General physical health deterioration [Unknown]
  - Vomiting [Unknown]
  - Nausea [Recovering/Resolving]
  - Weight decreased [Unknown]
  - Drug ineffective [Unknown]
  - Skin discolouration [Not Recovered/Not Resolved]
  - Hair colour changes [Recovered/Resolved]
  - Weight increased [Unknown]
  - Malaise [Unknown]

NARRATIVE: CASE EVENT DATE: 20210225
